FAERS Safety Report 5892449-5 (Version None)
Quarter: 2008Q3

REPORT INFORMATION
  Report Type: 
  Country: None (occurrence: None)
  Receive Date: 20080923
  Receipt Date: 20080911
  Transmission Date: 20090109
  Serious: Yes (Other)
  Sender: FDA-Public Use
  Company Number: CA-JNJFOC-20080902893

PATIENT
  Sex: Female
  Weight: 73 kg

DRUGS (4)
  1. REMICADE [Suspect]
     Route: 042
  2. REMICADE [Suspect]
     Indication: RHEUMATOID ARTHRITIS
     Route: 042
  3. BENADRYL [Concomitant]
     Route: 048
  4. TYLENOL (CAPLET) [Concomitant]
     Route: 048

REACTIONS (6)
  - BURNING SENSATION [None]
  - INFUSION RELATED REACTION [None]
  - NAUSEA [None]
  - OPEN WOUND [None]
  - PRURITUS [None]
  - RASH [None]
